FAERS Safety Report 12914563 (Version 1)
Quarter: 2016Q4

REPORT INFORMATION
  Report Type: Spontaneous
  Country: US (occurrence: US)
  Receive Date: 20161106
  Receipt Date: 20161106
  Transmission Date: 20170207
  Serious: No
  Sender: FDA-Public Use
  Company Number: US-RELYPSA-RLY2016001822

PATIENT
  Age: 65 Year
  Sex: Female

DRUGS (20)
  1. MULTIVITAMINS, PLAIN [Concomitant]
     Active Substance: VITAMINS
  2. ALLOPURINOL. [Concomitant]
     Active Substance: ALLOPURINOL
  3. DILTIAZEM CD [Concomitant]
     Active Substance: DILTIAZEM
  4. GUANFACINE HCL [Concomitant]
     Active Substance: GUANFACINE HYDROCHLORIDE
  5. LABETALOL HCL [Concomitant]
     Active Substance: LABETALOL HYDROCHLORIDE
  6. LACTULOSE. [Concomitant]
     Active Substance: LACTULOSE
  7. LANTUS [Concomitant]
     Active Substance: INSULIN GLARGINE
  8. OXYCODONE HYDROCHLORIDE. [Concomitant]
     Active Substance: OXYCODONE HYDROCHLORIDE
  9. VELTASSA [Suspect]
     Active Substance: PATIROMER
     Indication: HYPERKALAEMIA
     Dosage: 8.4 G, Q.D.
     Route: 048
  10. OXYCONTIN [Concomitant]
     Active Substance: OXYCODONE HYDROCHLORIDE
  11. ASPIRIN                            /00002701/ [Concomitant]
     Active Substance: ASPIRIN
  12. COLCHICINE. [Concomitant]
     Active Substance: COLCHICINE
  13. FUROSEMIDE. [Concomitant]
     Active Substance: FUROSEMIDE
  14. JANUVIA [Concomitant]
     Active Substance: SITAGLIPTIN PHOSPHATE
  15. XANAX [Concomitant]
     Active Substance: ALPRAZOLAM
  16. XIFAXAN [Concomitant]
     Active Substance: RIFAXIMIN
  17. GLIPIZIDE. [Concomitant]
     Active Substance: GLIPIZIDE
  18. ISOSORBIDE MONONITRATE. [Concomitant]
     Active Substance: ISOSORBIDE MONONITRATE
  19. LEVAQUIN [Concomitant]
     Active Substance: LEVOFLOXACIN
  20. ZETIA [Concomitant]
     Active Substance: EZETIMIBE

REACTIONS (1)
  - Malaise [Unknown]

NARRATIVE: CASE EVENT DATE: 20160810
